FAERS Safety Report 26075091 (Version 1)
Quarter: 2025Q4

REPORT INFORMATION
  Report Type: Other
  Country: US (occurrence: US)
  Receive Date: 20251121
  Receipt Date: 20251121
  Transmission Date: 20260117
  Serious: No
  Sender: VERASTEM
  Company Number: US-VERASTEM-250915US-AFCPK-00571

PATIENT

DRUGS (11)
  1. AVMAPKI FAKZYNJA CO-PACK [Suspect]
     Active Substance: AVUTOMETINIB POTASSIUM\DEFACTINIB HYDROCHLORIDE
     Indication: Ovarian cancer
     Dosage: AVUTOMETINIB 2.4MG ONCE DAILY/ DEFACTINIB 200MG ONCE DAILY
     Route: 048
     Dates: start: 20250728
  2. BISACODYL [Concomitant]
     Active Substance: BISACODYL
     Indication: Product used for unknown indication
     Route: 065
  3. CLINDAMYCIN PHOSPHATE [Concomitant]
     Active Substance: CLINDAMYCIN PHOSPHATE
     Indication: Product used for unknown indication
     Route: 065
  4. DOXYCYCLINE HYCLATE [Concomitant]
     Active Substance: DOXYCYCLINE HYCLATE
     Indication: Product used for unknown indication
     Route: 065
  5. HYDROCORTISONE [Concomitant]
     Active Substance: HYDROCORTISONE
     Indication: Product used for unknown indication
     Route: 065
  6. KETOROLAC [Concomitant]
     Active Substance: KETOROLAC TROMETHAMINE
     Indication: Product used for unknown indication
     Route: 065
  7. TROMETHAMINE [Concomitant]
     Active Substance: TROMETHAMINE
     Indication: Product used for unknown indication
     Route: 065
  8. PREDNISOLONE ACETATE [Concomitant]
     Active Substance: PREDNISOLONE ACETATE
     Indication: Product used for unknown indication
     Route: 065
  9. CYCLOPENTOLATE W/PHENYLEPHRINE/TROPICAMIDE [Concomitant]
     Indication: Product used for unknown indication
     Route: 065
  10. TYLENOL [Concomitant]
     Active Substance: ACETAMINOPHEN
     Indication: Product used for unknown indication
     Route: 065
  11. VALACYCLOVIR [Concomitant]
     Active Substance: VALACYCLOVIR HYDROCHLORIDE
     Indication: Product used for unknown indication
     Dosage: UNK
     Route: 065

REACTIONS (3)
  - Impaired gastric emptying [Recovering/Resolving]
  - Abdominal pain upper [Recovering/Resolving]
  - Dyspepsia [Recovering/Resolving]
